FAERS Safety Report 17603731 (Version 1)
Quarter: 2020Q1

REPORT INFORMATION
  Report Type: Spontaneous
  Country: IT (occurrence: IT)
  Receive Date: 20200331
  Receipt Date: 20200331
  Transmission Date: 20200409
  Serious: Yes (Other)
  Sender: FDA-Public Use
  Company Number: IT-TEVA-2020-IT-1212831

PATIENT
  Age: 56 Year
  Sex: Female
  Weight: 44 kg

DRUGS (1)
  1. TAMOXIFEN CITRATE. [Suspect]
     Active Substance: TAMOXIFEN CITRATE
     Indication: BREAST CANCER
     Dosage: 20 MG
     Route: 048
     Dates: start: 20191216, end: 20191217

REACTIONS (7)
  - Nausea [Recovering/Resolving]
  - Chest injury [Recovering/Resolving]
  - Vomiting [Recovering/Resolving]
  - Neck pain [Recovering/Resolving]
  - Paraesthesia [Recovering/Resolving]
  - Chest pain [Recovering/Resolving]
  - Insomnia [Recovering/Resolving]

NARRATIVE: CASE EVENT DATE: 20191216
